FAERS Safety Report 8611154-5 (Version None)
Quarter: 2012Q3

REPORT INFORMATION
  Report Type: 
  Country: None (occurrence: None)
  Receive Date: 20120822
  Receipt Date: 20120815
  Transmission Date: 20120928
  Serious: No
  Sender: FDA-Public Use
  Company Number: US-ASTRAZENECA-2012SE57862

PATIENT
  Age: 55 Year
  Sex: Female

DRUGS (2)
  1. KLONOPIN [Concomitant]
  2. SEROQUEL [Suspect]
     Indication: ANXIETY
     Route: 048

REACTIONS (3)
  - WEIGHT DECREASED [None]
  - DRY MOUTH [None]
  - OFF LABEL USE [None]
